FAERS Safety Report 20875689 (Version 1)
Quarter: 2022Q2

REPORT INFORMATION
  Report Type: Other
  Country: FR (occurrence: FR)
  Receive Date: 20220526
  Receipt Date: 20220526
  Transmission Date: 20220720
  Serious: Yes (Other)
  Sender: FDA-Public Use
  Company Number: FR-IBSA PHARMA INC.-2022IBS000163

PATIENT

DRUGS (3)
  1. LEVOTHYROXINE SODIUM [Suspect]
     Active Substance: LEVOTHYROXINE SODIUM
     Indication: Hypothyroidism
     Dosage: UNK
     Route: 048
     Dates: start: 20181201, end: 20200731
  2. LEVOTHYROXINE SODIUM [Suspect]
     Active Substance: LEVOTHYROXINE SODIUM
     Dosage: 13 ?G + 25 ?G
     Route: 048
     Dates: start: 20200801, end: 20211231
  3. LEVOTHYROXINE SODIUM [Suspect]
     Active Substance: LEVOTHYROXINE SODIUM
     Dosage: 50 ?G, UNK
     Route: 048
     Dates: start: 20220101, end: 20220409

REACTIONS (10)
  - Migraine [Not Recovered/Not Resolved]
  - Asthenia [Not Recovered/Not Resolved]
  - Gastrointestinal disorder [Not Recovered/Not Resolved]
  - Depression [Not Recovered/Not Resolved]
  - Myalgia [Not Recovered/Not Resolved]
  - Dizziness [Not Recovered/Not Resolved]
  - Diffuse alopecia [Not Recovered/Not Resolved]
  - Tachycardia [Not Recovered/Not Resolved]
  - Insomnia [Not Recovered/Not Resolved]
  - Arthralgia [Not Recovered/Not Resolved]

NARRATIVE: CASE EVENT DATE: 20181202
